FAERS Safety Report 17996514 (Version 1)
Quarter: 2020Q3

REPORT INFORMATION
  Report Type: Spontaneous
  Country: US (occurrence: US)
  Receive Date: 20200709
  Receipt Date: 20200709
  Transmission Date: 20201103
  Serious: No
  Sender: FDA-Public Use
  Company Number: US-TAKEDA-2020TUS029074

PATIENT
  Age: 43 Year
  Sex: Male

DRUGS (1)
  1. ENTYVIO [Suspect]
     Active Substance: VEDOLIZUMAB
     Indication: CROHN^S DISEASE
     Dosage: 300 MILLIGRAM
     Route: 065
     Dates: start: 201912

REACTIONS (3)
  - Blood albumin decreased [Unknown]
  - Crohn^s disease [Unknown]
  - Sinus disorder [Unknown]

NARRATIVE: CASE EVENT DATE: 201912
